FAERS Safety Report 21636860 (Version 2)
Quarter: 2023Q2

REPORT INFORMATION
  Report Type: Report from Study
  Country: KR (occurrence: KR)
  Receive Date: 20221124
  Receipt Date: 20230406
  Transmission Date: 20230722
  Serious: Yes (Hospitalization)
  Sender: FDA-Public Use
  Company Number: KR-ABBVIE-4211326

PATIENT
  Sex: Female
  Weight: 56 kg

DRUGS (22)
  1. RINVOQ [Suspect]
     Active Substance: UPADACITINIB
     Indication: Rheumatoid arthritis
     Route: 048
     Dates: start: 20220610, end: 20221110
  2. RINVOQ [Suspect]
     Active Substance: UPADACITINIB
     Indication: Rheumatoid arthritis
     Route: 048
     Dates: start: 20221209
  3. RINVOQ [Suspect]
     Active Substance: UPADACITINIB
     Indication: Rheumatoid arthritis
     Route: 048
     Dates: start: 20221121, end: 20221130
  4. PLASMA SOLUTION A [Concomitant]
     Indication: Occipital neuralgia
     Dosage: INJ 1L, IV DROPPING
     Route: 042
     Dates: start: 20221113, end: 20221115
  5. K-CAB [Concomitant]
     Indication: Prophylaxis against gastrointestinal ulcer
     Dosage: TAB 50MG
     Route: 048
     Dates: start: 20220610
  6. METHYLPREDNISOLONE [Concomitant]
     Active Substance: METHYLPREDNISOLONE
     Indication: Rheumatoid arthritis
     Dates: start: 20190125, end: 20190313
  7. METHYLPREDNISOLONE [Concomitant]
     Active Substance: METHYLPREDNISOLONE
     Indication: Rheumatoid arthritis
     Dosage: STEROIDS-METHYLPREDNISOLON
     Dates: start: 20181026, end: 20190124
  8. METHYLPREDNISOLONE [Concomitant]
     Active Substance: METHYLPREDNISOLONE
     Indication: Rheumatoid arthritis
     Dates: start: 20190314, end: 20200828
  9. METHYLPREDNISOLONE [Concomitant]
     Active Substance: METHYLPREDNISOLONE
     Indication: Rheumatoid arthritis
     Dates: start: 20200829
  10. ACETYLCYSTEINE [Concomitant]
     Active Substance: ACETYLCYSTEINE
     Indication: Occipital neuralgia
     Dosage: TIME INTERVAL: 0.33333333 DAYS: INJ. 300MG
     Route: 042
     Dates: start: 20221114, end: 20221115
  11. DONGA GASTER [Concomitant]
     Indication: Occipital neuralgia
     Route: 042
     Dates: start: 20221114, end: 20221114
  12. CEFAZOLINE CKD [Concomitant]
     Indication: Occipital neuralgia
     Route: 042
     Dates: start: 20221114, end: 20221114
  13. CEFAZOLINE CKD [Concomitant]
     Indication: Occipital neuralgia
     Route: 042
     Dates: start: 20221115, end: 20221115
  14. ONSERAN [Concomitant]
     Indication: Occipital neuralgia
     Dosage: INJ 4MG/2ML, PRN
     Route: 042
     Dates: start: 20221114, end: 20221114
  15. NEURONTIN [Concomitant]
     Active Substance: GABAPENTIN
     Indication: Occipital neuralgia
     Dosage: TIME INTERVAL: 0.33333333 DAYS: CAP 300MG
     Route: 048
     Dates: start: 20221115, end: 20221213
  16. NEURONTIN [Concomitant]
     Active Substance: GABAPENTIN
     Indication: Occipital neuralgia
     Route: 048
     Dates: start: 20221214
  17. CELEBREX [Concomitant]
     Active Substance: CELECOXIB
     Indication: Rheumatoid arthritis
     Dates: start: 20191104, end: 20200828
  18. CELEBREX [Concomitant]
     Active Substance: CELECOXIB
     Indication: Rheumatoid arthritis
     Dates: start: 20200829
  19. CELEBREX [Concomitant]
     Active Substance: CELECOXIB
     Indication: Rheumatoid arthritis
     Dosage: NSAIDS-CELECOXIB (CELEBREX)
     Dates: start: 20181224, end: 20191103
  20. DICHLOZID [Concomitant]
     Indication: Face oedema
     Route: 048
     Dates: start: 20190813
  21. SMOFLIPID [Concomitant]
     Active Substance: FISH OIL\MEDIUM-CHAIN TRIGLYCERIDES\OLIVE OIL\SOYBEAN OIL
     Indication: Occipital neuralgia
     Dosage: 20 PERCENT INJ 500ML, IV DROPPING
     Route: 042
     Dates: start: 20221113, end: 20221116
  22. EZETIMIBE\ROSUVASTATIN [Concomitant]
     Active Substance: EZETIMIBE\ROSUVASTATIN
     Indication: Dyslipidaemia
     Route: 048
     Dates: start: 20221223

REACTIONS (1)
  - Occipital neuralgia [Recovered/Resolved]

NARRATIVE: CASE EVENT DATE: 20221001
